FAERS Safety Report 13929860 (Version 1)
Quarter: 2017Q3

REPORT INFORMATION
  Report Type: Spontaneous
  Country: SI (occurrence: SI)
  Receive Date: 20170901
  Receipt Date: 20170901
  Transmission Date: 20171127
  Serious: Yes (Death, Other)
  Sender: FDA-Public Use
  Company Number: SI-JNJFOC-20170808527

PATIENT
  Sex: Female

DRUGS (5)
  1. EDEMID [Concomitant]
     Active Substance: FUROSEMIDE
     Route: 065
  2. PRENESSA [Concomitant]
     Active Substance: PERINDOPRIL
     Route: 065
  3. LANITOP [Concomitant]
     Active Substance: METILDIGOXIN
     Route: 065
  4. CORYOL [Concomitant]
     Active Substance: CARVEDILOL
     Route: 065
  5. XARELTO [Suspect]
     Active Substance: RIVAROXABAN
     Indication: PRODUCT USED FOR UNKNOWN INDICATION
     Route: 048

REACTIONS (3)
  - Intraventricular haemorrhage [Fatal]
  - Cerebral haemorrhage [Fatal]
  - Brain herniation [Fatal]

NARRATIVE: CASE EVENT DATE: 20170608
